FAERS Safety Report 24617797 (Version 2)
Quarter: 2024Q4

REPORT INFORMATION
  Report Type: Spontaneous
  Country: JP (occurrence: JP)
  Receive Date: 20241114
  Receipt Date: 20241204
  Transmission Date: 20250115
  Serious: Yes (Death, Other)
  Sender: BIOVITRUM
  Company Number: JP-BIOVITRUM-2024-JP-014650

PATIENT
  Age: 71 Year
  Sex: Male

DRUGS (1)
  1. DOPTELET [Suspect]
     Active Substance: AVATROMBOPAG MALEATE
     Indication: Liver disorder
     Dosage: ONCE /DAY
     Route: 048
     Dates: start: 20241026, end: 20241030

REACTIONS (2)
  - Platelet count decreased [Fatal]
  - Malignant neoplasm progression [Fatal]

NARRATIVE: CASE EVENT DATE: 20241101
